FAERS Safety Report 10484384 (Version 1)
Quarter: 2014Q3

REPORT INFORMATION
  Report Type: Spontaneous
  Country: US (occurrence: US)
  Receive Date: 20140930
  Receipt Date: 20140930
  Transmission Date: 20150326
  Serious: No
  Sender: FDA-Public Use
  Company Number: US-PFIZER INC-2014267227

PATIENT
  Age: 54 Year
  Sex: Male
  Weight: 99.77 kg

DRUGS (4)
  1. SUTENT [Suspect]
     Active Substance: SUNITINIB MALATE
     Indication: RENAL CELL CARCINOMA
     Dosage: 50 MG, CYCLIC (ONCE A DAY, 28 DAYS ON WASH OUT PERIOD AND TWO WEEKS OFF WASH OUT PERIOD)
     Route: 048
     Dates: start: 201209
  2. VITAMIN C [Concomitant]
     Active Substance: ASCORBIC ACID
     Dosage: UNK
  3. VITAMIN D [Concomitant]
     Active Substance: CHOLECALCIFEROL
     Dosage: UNK
  4. PROPRANOLOL [Concomitant]
     Active Substance: PROPRANOLOL\PROPRANOLOL HYDROCHLORIDE
     Dosage: UNK

REACTIONS (17)
  - Hair colour changes [Unknown]
  - Yellow skin [Unknown]
  - Fatigue [Unknown]
  - Diarrhoea [Unknown]
  - Gastrooesophageal reflux disease [Unknown]
  - Constipation [Unknown]
  - Thinking abnormal [Unknown]
  - Insomnia [Unknown]
  - Pain in jaw [Unknown]
  - Gingival bleeding [Unknown]
  - Back pain [Unknown]
  - Paraesthesia [Unknown]
  - Delusion [Unknown]
  - Irritability [Unknown]
  - Contusion [Unknown]
  - Dyspnoea [Unknown]
  - Faeces discoloured [Unknown]

NARRATIVE: CASE EVENT DATE: 201209
